FAERS Safety Report 4483359-9 (Version None)
Quarter: 2004Q4

REPORT INFORMATION
  Report Type: 
  Country: None (occurrence: None)
  Receive Date: 20041020
  Receipt Date: 20041004
  Transmission Date: 20050328
  Serious: Yes (Hospitalization)
  Sender: FDA-Public Use
  Company Number: FR_040804586

PATIENT
  Age: 1 Day
  Sex: Male

DRUGS (5)
  1. PROZAC [Suspect]
     Route: 064
  2. ZOLOFT [Concomitant]
  3. XANAX [Concomitant]
  4. ZOLPIDEM TARTRATE [Concomitant]
  5. PENICILLIN [Concomitant]

REACTIONS (12)
  - BRADYCARDIA NEONATAL [None]
  - CEREBRAL THROMBOSIS [None]
  - CEREBRAL VENTRICLE DILATATION [None]
  - CYANOSIS NEONATAL [None]
  - HYPOTHERMIA NEONATAL [None]
  - INTRAVENTRICULAR HAEMORRHAGE NEONATAL [None]
  - MATERNAL CONDITION AFFECTING FOETUS [None]
  - MATERNAL DRUGS AFFECTING FOETUS [None]
  - NEONATAL DISORDER [None]
  - NEONATAL RESPIRATORY DISTRESS SYNDROME [None]
  - PREMATURE BABY [None]
  - UNWANTED PREGNANCY [None]
